FAERS Safety Report 4290122-0 (Version None)
Quarter: 2004Q1

REPORT INFORMATION
  Report Type: 
  Country: None (occurrence: None)
  Receive Date: 20040209
  Receipt Date: 20040204
  Transmission Date: 20041129
  Serious: Yes (Hospitalization)
  Sender: FDA-Public Use
  Company Number: 2004-02-0141

PATIENT
  Age: 46 Year
  Sex: Female

DRUGS (2)
  1. PEG-INTRON [Suspect]
     Indication: HEPATITIS C
     Dosage: 120 MCG QWK; SUBCUTANEOUS
     Route: 058
     Dates: start: 20031208
  2. REBETOL [Suspect]
     Indication: HEPATITIS C
     Dosage: ^100 MG^ QD; ORAL
     Route: 048
     Dates: start: 20031208

REACTIONS (1)
  - AURICULAR PERICHONDRITIS [None]
